FAERS Safety Report 5455830-4 (Version None)
Quarter: 2007Q3

REPORT INFORMATION
  Report Type: 
  Country: None (occurrence: None)
  Receive Date: 20070914
  Receipt Date: 20070910
  Transmission Date: 20080115
  Serious: Yes (Hospitalization)
  Sender: FDA-Public Use
  Company Number: 2007BI016685

PATIENT
  Age: 46 Year
  Sex: Female
  Weight: 92.9874 kg

DRUGS (2)
  1. AVONEX [Suspect]
     Indication: MULTIPLE SCLEROSIS
     Dosage: IM
     Route: 030
  2. AVONEX [Suspect]
     Indication: MULTIPLE SCLEROSIS
     Dosage: 30 UG; QW; IM
     Route: 030
     Dates: start: 20061001

REACTIONS (4)
  - ARTHROPOD BITE [None]
  - LOCALISED INFECTION [None]
  - SKIN REACTION [None]
  - STAPHYLOCOCCAL INFECTION [None]
